FAERS Safety Report 10060434 (Version 3)
Quarter: 2014Q2

REPORT INFORMATION
  Report Type: Spontaneous
  Country: US (occurrence: US)
  Receive Date: 20140404
  Receipt Date: 20140421
  Transmission Date: 20141212
  Serious: Yes (Disabling)
  Sender: FDA-Public Use
  Company Number: US-PFIZER INC-2013251225

PATIENT
  Age: 66 Year
  Sex: Male

DRUGS (3)
  1. VIAGRA [Suspect]
     Dosage: 100 MG, AS NEEDED
     Route: 048
  2. REQUIP [Concomitant]
     Dosage: 0.25 MG ONCE DAILY AS NEEDED
     Route: 048
  3. LEVODOPA-CARBIDOPA [Concomitant]
     Dosage: 100MG/25 MG, 3X/DAY

REACTIONS (1)
  - Nervous system disorder [Unknown]
